FAERS Safety Report 15458863 (Version 1)
Quarter: 2018Q4

REPORT INFORMATION
  Report Type: Spontaneous
  Country: US (occurrence: US)
  Receive Date: 20181003
  Receipt Date: 20181003
  Transmission Date: 20190204
  Serious: No
  Sender: FDA-Public Use
  Company Number: US-SA-2018SA271788

PATIENT
  Sex: Female

DRUGS (1)
  1. TROLAMINE SALICYLATE. [Suspect]
     Active Substance: TROLAMINE SALICYLATE

REACTIONS (1)
  - Intentional product misuse [Unknown]
